FAERS Safety Report 25115581 (Version 1)
Quarter: 2025Q1

REPORT INFORMATION
  Report Type: Report from Study
  Country: CA (occurrence: CA)
  Receive Date: 20250325
  Receipt Date: 20250325
  Transmission Date: 20250409
  Serious: Yes (Hospitalization)
  Sender: ABBVIE
  Company Number: CA-ABBVIE-6188276

PATIENT
  Age: 81 Year
  Sex: Male

DRUGS (2)
  1. LUPRON [Suspect]
     Active Substance: LEUPROLIDE ACETATE
     Indication: Prostate cancer
     Dosage: DOSE STRENGTH: 22.5 MG
     Route: 065
     Dates: start: 20240708
  2. XTANDI [Concomitant]
     Active Substance: ENZALUTAMIDE
     Indication: Product used for unknown indication
     Dates: start: 202411

REACTIONS (3)
  - Fall [Unknown]
  - Hypotension [Unknown]
  - Respiratory tract infection [Unknown]
